FAERS Safety Report 25563276 (Version 1)
Quarter: 2025Q3

REPORT INFORMATION
  Report Type: Spontaneous
  Country: US (occurrence: US)
  Receive Date: 20250716
  Receipt Date: 20250716
  Transmission Date: 20251021
  Serious: Yes (Hospitalization, Other)
  Sender: NOVO NORDISK
  Company Number: US-NOVOPROD-1288524

PATIENT
  Age: 43 Year
  Sex: Female
  Weight: 56.236 kg

DRUGS (3)
  1. OZEMPIC [Suspect]
     Active Substance: SEMAGLUTIDE
     Indication: Obesity
     Dosage: 1 MG, QW
     Route: 058
     Dates: start: 20210923, end: 20211028
  2. PANTOPRAZOLE [Concomitant]
     Active Substance: PANTOPRAZOLE
     Indication: Gastrooesophageal reflux disease
     Dates: start: 20190101
  3. PROBIOTICS NOS [Concomitant]
     Active Substance: PROBIOTICS NOS
     Indication: Prophylaxis
     Dates: start: 20220101

REACTIONS (4)
  - Impaired gastric emptying [Not Recovered/Not Resolved]
  - Decreased appetite [Not Recovered/Not Resolved]
  - Constipation [Not Recovered/Not Resolved]
  - Off label use [Unknown]

NARRATIVE: CASE EVENT DATE: 20210901
